FAERS Safety Report 20335912 (Version 1)
Quarter: 2022Q1

REPORT INFORMATION
  Report Type: Spontaneous
  Country: US (occurrence: None)
  Receive Date: 20220113
  Receipt Date: 20220113
  Transmission Date: 20220424
  Serious: No
  Sender: FDA-Public Use
  Company Number: None

PATIENT
  Age: 63 Year
  Sex: Female

DRUGS (2)
  1. ESTRADIOL [Suspect]
     Active Substance: ESTRADIOL
     Dosage: FREQUENCY : TWICE A WEEK;?
  2. IMVEXXY [Suspect]
     Active Substance: ESTRADIOL
     Dosage: FREQUENCY : TWICE A WEEK;?

REACTIONS (1)
  - Burning sensation [None]

NARRATIVE: CASE EVENT DATE: 20220113
